FAERS Safety Report 8111991-X (Version None)
Quarter: 2011Q4

REPORT INFORMATION
  Report Type: 
  Country: None (occurrence: None)
  Receive Date: 20111223
  Receipt Date: 20110822
  Transmission Date: 20120403
  Serious: Yes (Other)
  Sender: FDA-Public Use
  Company Number: PHEH2011US01223

PATIENT
  Age: 72 Year
  Sex: Female
  Weight: 82.1 kg

DRUGS (7)
  1. FLUTICASONE PROPIONATE [Concomitant]
  2. TRIAMTERENE AND HYDROCHLOROTHIAZIDE (HYDROCHLOROTHIAZIDE, TRIAMTERENE) [Concomitant]
  3. SULINDAC [Concomitant]
  4. ARIMIDEX [Concomitant]
  5. TAMOXIFEN CITRATE [Concomitant]
  6. TAMOXIFENO (TAMOXIFEN CITRATE) [Concomitant]
  7. FEMARA [Suspect]
     Indication: BREAST CANCER FEMALE
     Dosage: 25 MG, DAILY, ORAL
     Route: 048

REACTIONS (3)
  - ARTHRALGIA [None]
  - PAIN [None]
  - ARTHRITIS [None]
